FAERS Safety Report 5796893-6 (Version None)
Quarter: 2008Q3

REPORT INFORMATION
  Report Type: 
  Country: None (occurrence: None)
  Receive Date: 20080701
  Receipt Date: 20080617
  Transmission Date: 20090109
  Serious: Yes (Hospitalization, Other)
  Sender: FDA-Public Use
  Company Number: US-ELI_LILLY_AND_COMPANY-US200805004621

PATIENT
  Age: 80 Year
  Sex: Female
  Weight: 61.587 kg

DRUGS (27)
  1. FORTEO [Suspect]
     Dosage: 20 UG, DAILY (1/D)
     Dates: start: 20060801
  2. NOVOLOG [Concomitant]
  3. ALLOPURINOL [Concomitant]
  4. CARDIZEM [Concomitant]
  5. CATAPRES /00171102/ [Concomitant]
  6. CELEXA [Concomitant]
  7. VITAMINS NOS [Concomitant]
  8. COLACE [Concomitant]
  9. COLCHICINE [Concomitant]
  10. K-DUR [Concomitant]
     Indication: BLOOD POTASSIUM DECREASED
  11. KEPPRA [Concomitant]
  12. LANTUS [Concomitant]
  13. LASIX [Concomitant]
  14. LIPITOR [Concomitant]
  15. MEGACE [Concomitant]
  16. PEPCID [Concomitant]
  17. QUESTRAN [Concomitant]
  18. ASPIRIN [Concomitant]
     Dosage: 81 MG, DAILY (1/D)
  19. ATENOLOL [Concomitant]
  20. NEXIUM [Concomitant]
  21. LOTREL [Concomitant]
  22. VITAMIN D [Concomitant]
  23. VICODIN [Concomitant]
     Dosage: UNK, AS NEEDED
  24. IMIPRAMINE [Concomitant]
     Dosage: UNK, EACH EVENING
  25. LORAZEPAM [Concomitant]
     Dosage: UNK, EACH EVENING
  26. RESTASIS [Concomitant]
  27. CALCIUM CARBONATE [Concomitant]

REACTIONS (8)
  - AMNESIA [None]
  - APPETITE DISORDER [None]
  - ASTHENIA [None]
  - COGNITIVE DISORDER [None]
  - DIARRHOEA [None]
  - FALL [None]
  - SUBARACHNOID HAEMORRHAGE [None]
  - SUBDURAL HAEMORRHAGE [None]
